FAERS Safety Report 15823479 (Version 4)
Quarter: 2019Q4

REPORT INFORMATION
  Report Type: Spontaneous
  Country: FI (occurrence: FI)
  Receive Date: 20190114
  Receipt Date: 20191002
  Transmission Date: 20200122
  Serious: Yes (Other)
  Sender: FDA-Public Use
  Company Number: FI-MYLANLABS-2019M1002504

PATIENT
  Age: 63 Year
  Sex: Female

DRUGS (4)
  1. WARFARIN [Suspect]
     Active Substance: WARFARIN
     Indication: PRODUCT USED FOR UNKNOWN INDICATION
     Dosage: UNK
  2. ASPIRIN                            /00002701/ [Interacting]
     Active Substance: ASPIRIN
     Indication: PRODUCT USED FOR UNKNOWN INDICATION
     Dosage: 100 MILLIGRAM, QD
     Dates: end: 201704
  3. IRON [Concomitant]
     Active Substance: IRON
     Indication: IRON DEFICIENCY
     Dosage: UNK
     Route: 042
  4. ASPIRIN                            /00002701/ [Interacting]
     Active Substance: ASPIRIN
     Dosage: UNK
     Dates: start: 201705

REACTIONS (8)
  - Anaemia [Recovered/Resolved]
  - Melaena [Recovered/Resolved]
  - Iron deficiency [Recovered/Resolved]
  - Labelled drug-drug interaction medication error [Unknown]
  - Gastrointestinal haemorrhage [Recovered/Resolved]
  - Product administration error [Unknown]
  - Condition aggravated [Recovered/Resolved]
  - Intentional product misuse [Unknown]

NARRATIVE: CASE EVENT DATE: 201704
